FAERS Safety Report 7082820-0 (Version None)
Quarter: 2010Q4

REPORT INFORMATION
  Report Type: 
  Country: None (occurrence: None)
  Receive Date: 20101026
  Receipt Date: 20101018
  Transmission Date: 20110411
  Serious: Yes (Other)
  Sender: FDA-Public Use
  Company Number: 2010SP056020

PATIENT
  Sex: Male

DRUGS (2)
  1. NASONEX [Suspect]
     Indication: NASAL CONGESTION
     Dosage: 200 MCG; ; NAS
     Route: 045
     Dates: start: 20100801
  2. NASONEX [Suspect]
     Indication: RHINITIS ALLERGIC
     Dosage: 200 MCG; ; NAS
     Route: 045
     Dates: start: 20100801

REACTIONS (1)
  - HAEMOPTYSIS [None]
